FAERS Safety Report 7250371-6 (Version None)
Quarter: 2011Q1

REPORT INFORMATION
  Report Type: 
  Country: None (occurrence: None)
  Receive Date: 20110128
  Receipt Date: 20110121
  Transmission Date: 20110831
  Serious: Yes (Other)
  Sender: FDA-Public Use
  Company Number: US-US-EMD SERONO, INC.-7005111

PATIENT
  Sex: Female

DRUGS (3)
  1. REBIF [Suspect]
     Route: 058
     Dates: start: 20110103
  2. REBIF [Suspect]
     Indication: MULTIPLE SCLEROSIS
     Route: 058
     Dates: start: 20100318, end: 20100901
  3. REBIF [Suspect]
     Route: 058
     Dates: start: 20101001, end: 20101029

REACTIONS (4)
  - HELICOBACTER INFECTION [None]
  - UTERINE LEIOMYOMA [None]
  - UTERINE CYST [None]
  - ABDOMINAL PAIN [None]
